FAERS Safety Report 15077550 (Version 1)
Quarter: 2018Q2

REPORT INFORMATION
  Report Type: Spontaneous
  Country: US (occurrence: US)
  Receive Date: 20180607
  Receipt Date: 20180607
  Transmission Date: 20180711
  Serious: Yes (Hospitalization)
  Sender: FDA-Public Use
  Company Number: None

PATIENT
  Age: 77 Year
  Sex: Male

DRUGS (7)
  1. DOXAZOSIN [Concomitant]
     Active Substance: DOXAZOSIN\DOXAZOSIN MESYLATE
  2. BOSULIF [Suspect]
     Active Substance: BOSUTINIB MONOHYDRATE
     Indication: NEOPLASM MALIGNANT
     Route: 048
     Dates: start: 20141215
  3. LASIX [Concomitant]
     Active Substance: FUROSEMIDE
  4. FINASTERIDE. [Concomitant]
     Active Substance: FINASTERIDE
  5. SERTRALINE [Concomitant]
     Active Substance: SERTRALINE HYDROCHLORIDE
  6. CARDURA [Concomitant]
     Active Substance: DOXAZOSIN MESYLATE
  7. ALLOPURINOLES [Concomitant]

REACTIONS (2)
  - Cerebrovascular accident [None]
  - Dehydration [None]

NARRATIVE: CASE EVENT DATE: 201805
